FAERS Safety Report 5934647-8 (Version None)
Quarter: 2008Q4

REPORT INFORMATION
  Report Type: 
  Country: None (occurrence: None)
  Receive Date: 20081029
  Receipt Date: 20081015
  Transmission Date: 20090506
  Serious: Yes (Other)
  Sender: FDA-Public Use
  Company Number: US-B.I. PHARMACEUTICALS,INC./RIDGEFIELD-2008-DE-06125GD

PATIENT
  Sex: Male

DRUGS (10)
  1. NEVIRAPINE [Suspect]
     Indication: HIV INFECTION
  2. STAVUDINE [Suspect]
     Indication: HIV INFECTION
  3. DIDANOSINE [Suspect]
     Indication: HIV INFECTION
  4. TENOFOVIR [Suspect]
     Indication: HIV INFECTION
  5. EFAVIRENZ [Suspect]
     Indication: HIV INFECTION
  6. NELFINAVIR [Suspect]
     Indication: HIV INFECTION
  7. RITONAVIR [Suspect]
     Indication: HIV INFECTION
  8. AMPRENAVIR [Suspect]
     Indication: HIV INFECTION
  9. LOPINAVIR AND RITONAVIR [Suspect]
     Indication: HIV INFECTION
  10. HYDROXYUREA [Suspect]
     Indication: HIV INFECTION

REACTIONS (8)
  - DRUG EFFECT DECREASED [None]
  - EYELID PTOSIS [None]
  - GYNAECOMASTIA [None]
  - HEPATIC STEATOSIS [None]
  - HYPERCHOLESTEROLAEMIA [None]
  - LIPODYSTROPHY ACQUIRED [None]
  - OPHTHALMOPLEGIA [None]
  - PERIPHERAL SENSORY NEUROPATHY [None]
